FAERS Safety Report 8562652 (Version 4)
Quarter: 2012Q4

REPORT INFORMATION
  Report Type: 
  Country: US (occurrence: US)
  Receive Date: 20120515
  Receipt Date: 20121218
  Transmission Date: 20130627
  Serious: Yes (Hospitalization)
  Sender: FDA-Public Use
  Company Number: US-ACTELION-A-US2006-13449

PATIENT
  Age: 61 Year
  Sex: Female

DRUGS (5)
  1. TRACLEER [Suspect]
     Indication: PULMONARY ARTERIAL HYPERTENSION
     Dosage: 125 mg, bid
     Route: 048
  2. REVATIO [Concomitant]
     Indication: PULMONARY HYPERTENSION
     Dosage: 20 mg (titer), tid
     Dates: start: 2010
  3. COUMADIN [Concomitant]
  4. REQUIP [Concomitant]
     Indication: RESTLESS LEGS SYNDROME
     Dosage: 8 mg, od
     Dates: start: 2010
  5. OXYGEN [Concomitant]
     Dosage: UNK

REACTIONS (12)
  - Fall [Unknown]
  - Thrombosis [Unknown]
  - Asthma [Unknown]
  - Vertigo [Recovered/Resolved]
  - Dyspnoea [Not Recovered/Not Resolved]
  - Dizziness [Unknown]
  - Drug dose omission [Unknown]
  - Presyncope [Unknown]
  - Pleuritic pain [Unknown]
  - Musculoskeletal chest pain [Unknown]
  - Back pain [Unknown]
  - Fatigue [Unknown]
